FAERS Safety Report 17324358 (Version 1)
Quarter: 2020Q1

REPORT INFORMATION
  Report Type: Spontaneous
  Country: US (occurrence: US)
  Receive Date: 20200124
  Receipt Date: 20200124
  Transmission Date: 20200409
  Serious: Yes (Hospitalization, Other)
  Sender: FDA-Public Use
  Company Number: None

PATIENT
  Age: 59 Year
  Sex: Female
  Weight: 72.7 kg

DRUGS (2)
  1. GAMUNEX-C [Suspect]
     Active Substance: HUMAN IMMUNOGLOBULIN G
     Indication: IMMUNE THROMBOCYTOPENIC PURPURA
     Dosage: ?          OTHER FREQUENCY:ONCE DAILY X 2 DAY;?
     Route: 042
     Dates: start: 20200101, end: 20200101
  2. GAMUNEX-C [Suspect]
     Active Substance: HUMAN IMMUNOGLOBULIN G
     Indication: IMMUNE THROMBOCYTOPENIC PURPURA
     Dosage: ?          OTHER FREQUENCY:ONCE DAILY X 2 DAY;?
     Route: 042
     Dates: start: 20200101, end: 20200101

REACTIONS (3)
  - Anaemia [None]
  - Acute kidney injury [None]
  - Haemoglobinuria [None]

NARRATIVE: CASE EVENT DATE: 20200102
